FAERS Safety Report 6211603-6 (Version None)
Quarter: 2009Q2

REPORT INFORMATION
  Report Type: 
  Country: None (occurrence: None)
  Receive Date: 20090522
  Receipt Date: 20090410
  Transmission Date: 20091009
  Serious: No
  Sender: FDA-Public Use
  Company Number: 8044736

PATIENT
  Age: 46 Year
  Sex: Female
  Weight: 61.3 kg

DRUGS (3)
  1. CIMZIA [Suspect]
     Indication: CROHN'S DISEASE
     Dosage: 400 MG SC
     Route: 058
     Dates: start: 20090327
  2. BENTYL [Concomitant]
  3. CIPRO [Concomitant]

REACTIONS (4)
  - DIARRHOEA HAEMORRHAGIC [None]
  - FATIGUE [None]
  - INFLUENZA LIKE ILLNESS [None]
  - RECTAL HAEMORRHAGE [None]
